FAERS Safety Report 20989144 (Version 1)
Quarter: 2022Q2

REPORT INFORMATION
  Report Type: Report from Study
  Country: US (occurrence: US)
  Receive Date: 20220621
  Receipt Date: 20220621
  Transmission Date: 20220720
  Serious: Yes (Other)
  Sender: FDA-Public Use
  Company Number: US-SA-2022SA232171

PATIENT
  Age: 65 Year
  Sex: Female

DRUGS (4)
  1. DUPILUMAB [Suspect]
     Active Substance: DUPILUMAB
     Indication: Dermatitis atopic
     Dosage: UNK
  2. DUPILUMAB [Suspect]
     Active Substance: DUPILUMAB
     Indication: Eosinophilia
  3. HYDROXYUREA [Concomitant]
     Active Substance: HYDROXYUREA
     Indication: Dermatitis atopic
  4. HYDROXYUREA [Concomitant]
     Active Substance: HYDROXYUREA
     Indication: Eosinophilia

REACTIONS (2)
  - Cutaneous T-cell lymphoma stage I [Unknown]
  - Lymphocytic infiltration [Unknown]
